FAERS Safety Report 14939758 (Version 3)
Quarter: 2018Q2

REPORT INFORMATION
  Report Type: Spontaneous
  Country: US (occurrence: US)
  Receive Date: 20180525
  Receipt Date: 20180606
  Transmission Date: 20180711
  Serious: No
  Sender: FDA-Public Use
  Company Number: US-BIOGEN-2018BI00581004

PATIENT
  Age: 41 Year
  Sex: Female

DRUGS (7)
  1. MAGNESSIUM [Concomitant]
     Indication: PRODUCT USED FOR UNKNOWN INDICATION
     Route: 065
  2. FISH OIL [Concomitant]
     Active Substance: FISH OIL
     Indication: PRODUCT USED FOR UNKNOWN INDICATION
     Route: 065
  3. TECFIDERA [Suspect]
     Active Substance: DIMETHYL FUMARATE
     Indication: MULTIPLE SCLEROSIS
     Dosage: STARTING DOSE
     Route: 048
  4. TECFIDERA [Suspect]
     Active Substance: DIMETHYL FUMARATE
     Dosage: MAINTENANCE DOSE
     Route: 048
     Dates: start: 20141105, end: 20150904
  5. TECFIDERA [Suspect]
     Active Substance: DIMETHYL FUMARATE
     Dosage: MAINTENANCE DOSE
     Route: 048
  6. GLUCOSAMINE [Concomitant]
     Active Substance: GLUCOSAMINE
     Indication: PRODUCT USED FOR UNKNOWN INDICATION
     Route: 065
  7. PLEGRIDY [Suspect]
     Active Substance: PEGINTERFERON BETA-1A
     Indication: MULTIPLE SCLEROSIS
     Route: 050

REACTIONS (5)
  - Nausea [Recovered/Resolved]
  - Flushing [Unknown]
  - Hot flush [Unknown]
  - Amnesia [Unknown]
  - Gastric disorder [Unknown]

NARRATIVE: CASE EVENT DATE: 20141105
